FAERS Safety Report 24922527 (Version 1)
Quarter: 2025Q1

REPORT INFORMATION
  Report Type: Spontaneous
  Country: US (occurrence: None)
  Receive Date: 20250203
  Receipt Date: 20250203
  Transmission Date: 20250409
  Serious: Yes (Disabling)
  Sender: FDA-CTU
  Company Number: None

PATIENT

DRUGS (1)
  1. EYLEA HD [Suspect]
     Active Substance: AFLIBERCEPT
     Indication: Macular degeneration
     Route: 050
     Dates: start: 20240528, end: 20241126

REACTIONS (3)
  - Blindness unilateral [None]
  - Depression [None]
  - Impaired quality of life [None]

NARRATIVE: CASE EVENT DATE: 20250103
